FAERS Safety Report 6871259-6 (Version None)
Quarter: 2010Q3

REPORT INFORMATION
  Report Type: 
  Country: None (occurrence: None)
  Receive Date: 20100723
  Receipt Date: 20100712
  Transmission Date: 20110219
  Serious: Yes (Other)
  Sender: FDA-Public Use
  Company Number: JP-ROCHE-715494

PATIENT
  Sex: Male

DRUGS (9)
  1. TOCILIZUMAB [Suspect]
     Indication: RHEUMATOID ARTHRITIS
     Route: 042
     Dates: start: 20080530, end: 20080530
  2. TOCILIZUMAB [Suspect]
     Route: 042
     Dates: start: 20080627, end: 20080627
  3. AZULFIDINE [Suspect]
     Indication: RHEUMATOID ARTHRITIS
     Route: 048
     Dates: start: 20050101, end: 20080613
  4. PREDONINE [Concomitant]
     Route: 048
     Dates: end: 20060706
  5. PREDONINE [Concomitant]
     Route: 048
     Dates: start: 20060707
  6. ZYRTEC [Concomitant]
     Route: 048
  7. LOXONIN [Concomitant]
     Route: 048
  8. SELBEX [Concomitant]
     Dosage: FORM MINUTE GRAIN
     Route: 048
  9. METHYCOOL [Concomitant]
     Route: 048

REACTIONS (3)
  - BRONCHITIS [None]
  - RASH [None]
  - ULCERATIVE KERATITIS [None]
